FAERS Safety Report 16836130 (Version 8)
Quarter: 2020Q4

REPORT INFORMATION
  Report Type: Report from Study
  Country: None (occurrence: CA)
  Receive Date: 20190921
  Receipt Date: 20201014
  Transmission Date: 20210113
  Serious: Yes (Other)
  Sender: FDA-Public Use
  Company Number: CA-ABBVIE-19K-028-2932545-00

PATIENT
  Age: 65 Year
  Sex: Female

DRUGS (3)
  1. HUMIRA [Suspect]
     Active Substance: ADALIMUMAB
     Route: 058
     Dates: start: 20200213, end: 20200409
  2. HUMIRA [Suspect]
     Active Substance: ADALIMUMAB
     Route: 058
     Dates: start: 20200610
  3. HUMIRA [Suspect]
     Active Substance: ADALIMUMAB
     Indication: CROHN^S DISEASE
     Route: 058
     Dates: start: 20160526, end: 20200116

REACTIONS (10)
  - Crohn^s disease [Unknown]
  - Abdominal mass [Unknown]
  - Drug level decreased [Unknown]
  - Abdominal adhesions [Not Recovered/Not Resolved]
  - Intestinal obstruction [Recovered/Resolved]
  - Gastrointestinal stenosis [Unknown]
  - Arthritis [Not Recovered/Not Resolved]
  - Erythema [Recovering/Resolving]
  - Skin plaque [Recovering/Resolving]
  - Arthralgia [Recovering/Resolving]

NARRATIVE: CASE EVENT DATE: 201907
